FAERS Safety Report 24247334 (Version 2)
Quarter: 2024Q3

REPORT INFORMATION
  Report Type: Spontaneous
  Country: AU (occurrence: AU)
  Receive Date: 20240826
  Receipt Date: 20240924
  Transmission Date: 20241017
  Serious: Yes (Life-Threatening, Hospitalization)
  Sender: CSL BEHRING
  Company Number: AU-BEH-2024177306

PATIENT
  Age: 64 Year
  Sex: Female

DRUGS (5)
  1. ALBUREX [Suspect]
     Active Substance: ALBUMIN HUMAN
     Dosage: UNK
     Route: 042
     Dates: start: 20240612, end: 20240612
  2. EPINEPHRINE [Concomitant]
     Active Substance: EPINEPHRINE
  3. Renfor [Concomitant]
  4. SERETIDE [Concomitant]
     Active Substance: FLUTICASONE PROPIONATE\SALMETEROL XINAFOATE
  5. Sevitrue [Concomitant]

REACTIONS (5)
  - Anaphylactic reaction [Recovered/Resolved]
  - Bronchospasm [Recovered/Resolved]
  - Hypotension [Recovered/Resolved]
  - Rash erythematous [Recovered/Resolved]
  - Tryptase increased [Recovered/Resolved]

NARRATIVE: CASE EVENT DATE: 20240612
